FAERS Safety Report 10576124 (Version 5)
Quarter: 2015Q2

REPORT INFORMATION
  Report Type: Spontaneous
  Country: US (occurrence: US)
  Receive Date: 20141111
  Receipt Date: 20150601
  Transmission Date: 20150821
  Serious: Yes (Hospitalization)
  Sender: FDA-Public Use
  Company Number: US-BAYER-2014-165537

PATIENT
  Age: 22 Year
  Sex: Female
  Weight: 69.84 kg

DRUGS (10)
  1. DILAUDID [Concomitant]
     Active Substance: HYDROMORPHONE HYDROCHLORIDE
     Indication: PAIN
  2. FENTANYL. [Concomitant]
     Active Substance: FENTANYL
  3. CIPROFLOXACIN. [Concomitant]
     Active Substance: CIPROFLOXACIN
  4. IBUPROFEN. [Concomitant]
     Active Substance: IBUPROFEN
  5. NAPROXEN. [Concomitant]
     Active Substance: NAPROXEN
  6. MIRENA [Suspect]
     Active Substance: LEVONORGESTREL
     Indication: CONTRACEPTION
     Dosage: 20 MCG/24HR, CONT
     Route: 015
     Dates: start: 20110902, end: 20130117
  7. HYDROCODONE W/ACETAMINOPHEN [Concomitant]
     Active Substance: ACETAMINOPHEN\HYDROCODONE BITARTRATE
  8. ZOFRAN [Concomitant]
     Active Substance: ONDANSETRON HYDROCHLORIDE
     Indication: NAUSEA
  9. ASPIRIN. [Concomitant]
     Active Substance: ASPIRIN
     Indication: THROMBOSIS PROPHYLAXIS
     Dosage: DAILY
  10. COLACE [Concomitant]
     Active Substance: DOCUSATE SODIUM

REACTIONS (11)
  - Injury [None]
  - Procedural pain [None]
  - Device difficult to use [None]
  - Complication of device removal [None]
  - Nausea [None]
  - Uterine perforation [None]
  - Device breakage [None]
  - Pain [None]
  - Abdominal wall haematoma [None]
  - Vomiting [None]
  - Headache [None]

NARRATIVE: CASE EVENT DATE: 201301
